FAERS Safety Report 12413667 (Version 2)
Quarter: 2016Q2

REPORT INFORMATION
  Report Type: Report from Study
  Country: MX (occurrence: MX)
  Receive Date: 20160527
  Receipt Date: 20160613
  Transmission Date: 20160815
  Serious: Yes (Hospitalization, Other)
  Sender: FDA-Public Use
  Company Number: PHHY2016MX071969

PATIENT
  Age: 84 Year
  Sex: Female

DRUGS (5)
  1. AMIODARONE [Concomitant]
     Active Substance: AMIODARONE
     Indication: CARDIAC DISORDER
     Dosage: 1 DF (200 MG), Q12H
     Route: 048
     Dates: start: 201605
  2. DIGOXIN. [Concomitant]
     Active Substance: DIGOXIN
     Indication: PRODUCT USED FOR UNKNOWN INDICATION
     Dosage: 0.5 OT, FROM MONDAY TO FRIDAY
     Route: 065
     Dates: end: 201605
  3. ULTIBRO BREEZHALER [Suspect]
     Active Substance: GLYCOPYRRONIUM\INDACATEROL
     Indication: CHRONIC OBSTRUCTIVE PULMONARY DISEASE
     Dosage: 1 DF (50 MCG), QD
     Route: 065
     Dates: start: 20160214, end: 20160513
  4. MIFLONIDE [Suspect]
     Active Substance: BUDESONIDE
     Indication: CHRONIC OBSTRUCTIVE PULMONARY DISEASE
     Dosage: 2 DF (400 MCG), QD
     Route: 048
     Dates: start: 201602
  5. TELMISARTAN. [Concomitant]
     Active Substance: TELMISARTAN
     Indication: HYPERTENSION
     Dosage: 1 DF (40 MG), QD
     Route: 048
     Dates: start: 201602

REACTIONS (6)
  - Hypertension [Unknown]
  - Dyspnoea [Unknown]
  - Cardiomegaly [Unknown]
  - Hypoxia [Recovered/Resolved]
  - Arrhythmia [Not Recovered/Not Resolved]
  - Chest pain [Recovered/Resolved]

NARRATIVE: CASE EVENT DATE: 20160513
